FAERS Safety Report 6611664-6 (Version None)
Quarter: 2010Q1

REPORT INFORMATION
  Report Type: 
  Country: None (occurrence: None)
  Receive Date: 20100222
  Receipt Date: 20100210
  Transmission Date: 20100710
  Serious: Yes (Death, Hospitalization)
  Sender: FDA-Public Use
  Company Number: 2009AC000029

PATIENT
  Age: 49 Year
  Sex: Male

DRUGS (29)
  1. DIGOXIN [Suspect]
     Dosage: 0.125 MG; PO
     Route: 048
     Dates: start: 20060301
  2. DIGOXIN [Suspect]
     Dosage: .25 MG; QD; PO
     Route: 048
     Dates: start: 20060401
  3. DIGOXIN [Suspect]
     Dosage: .375 MG; QD; PO
     Route: 048
     Dates: start: 20060301
  4. DIGOXIN [Suspect]
     Dosage: 0.25 MG; QD; PO
     Route: 048
     Dates: start: 20060101
  5. LOPRESSOR [Concomitant]
  6. AMIODARONE HCL [Concomitant]
  7. LASIX [Concomitant]
  8. LISINOPRIL [Concomitant]
  9. DIOVAN [Concomitant]
  10. SPIRONOLACTONE [Concomitant]
  11. COREG [Concomitant]
  12. POTASSIUM [Concomitant]
  13. HYDROCODONE [Concomitant]
  14. COUMADIN [Concomitant]
  15. ADVAIR DISKUS 100/50 [Concomitant]
  16. LISINOPRIL [Concomitant]
  17. POTASSIUM CHLORIDE [Concomitant]
  18. COREG [Concomitant]
  19. FUROSEMIDE [Concomitant]
  20. HYDROCODONE [Concomitant]
  21. DIOVAN [Concomitant]
  22. SPIRONOLACTONE [Concomitant]
  23. CYCLOBENZAPRINE [Concomitant]
  24. DIOVAN [Concomitant]
  25. LASIX [Concomitant]
  26. LISINOPRIL [Concomitant]
  27. SPIRONOLACTONE [Concomitant]
  28. POTASSIUM [Concomitant]
  29. COREG [Concomitant]

REACTIONS (34)
  - ATRIAL FLUTTER [None]
  - CARDIAC ARREST [None]
  - CARDIAC FAILURE CONGESTIVE [None]
  - CARDIOACTIVE DRUG LEVEL DECREASED [None]
  - CARDIOMYOPATHY [None]
  - CHRONIC OBSTRUCTIVE PULMONARY DISEASE [None]
  - COMA [None]
  - CONFUSIONAL STATE [None]
  - CYANOSIS [None]
  - DISORIENTATION [None]
  - DIZZINESS [None]
  - DYSPNOEA [None]
  - DYSURIA [None]
  - FATIGUE [None]
  - HYPERGLYCAEMIA [None]
  - HYPERTENSION [None]
  - HYPOTENSION [None]
  - LETHARGY [None]
  - METABOLIC SYNDROME [None]
  - NAUSEA [None]
  - OEDEMA PERIPHERAL [None]
  - PNEUMONIA [None]
  - RASH [None]
  - RENAL FAILURE [None]
  - SLEEP APNOEA SYNDROME [None]
  - SOMNOLENCE [None]
  - TACHYCARDIA [None]
  - TREATMENT NONCOMPLIANCE [None]
  - UNRESPONSIVE TO STIMULI [None]
  - VENTRICULAR FIBRILLATION [None]
  - VENTRICULAR TACHYCARDIA [None]
  - VIRAL INFECTION [None]
  - VOMITING [None]
  - WEIGHT INCREASED [None]
